FAERS Safety Report 8176739-1 (Version None)
Quarter: 2012Q1

REPORT INFORMATION
  Report Type: 
  Country: None (occurrence: None)
  Receive Date: 20120228
  Receipt Date: 20120220
  Transmission Date: 20120608
  Serious: Yes (Hospitalization)
  Sender: FDA-Public Use
  Company Number: 2012-000659

PATIENT
  Age: 70 Year
  Sex: Female

DRUGS (2)
  1. ACTONEL [Suspect]
     Dosage: 35 MG, 1/WEEK, ORAL
     Route: 048
     Dates: end: 20120201
  2. IDEOS (CALCIUM CARBONATE, COLECALCIFEROL) [Concomitant]

REACTIONS (4)
  - FATIGUE [None]
  - RESPIRATORY TRACT INFECTION [None]
  - COUGH [None]
  - PYREXIA [None]
